FAERS Safety Report 16379224 (Version 1)
Quarter: 2019Q2

REPORT INFORMATION
  Report Type: Spontaneous
  Country: SE (occurrence: SE)
  Receive Date: 20190531
  Receipt Date: 20190531
  Transmission Date: 20190711
  Serious: Yes (Hospitalization)
  Sender: FDA-Public Use
  Company Number: SE-TEVA-2019-SE-1056917

PATIENT
  Age: 78 Year
  Sex: Female

DRUGS (4)
  1. GABAPENTIN ACTAVIS 100 MG KAPSEL, H?RD [Suspect]
     Active Substance: GABAPENTIN
     Indication: HERPES ZOSTER
     Dosage: 1+1+2
     Dates: start: 20190423, end: 20190503
  2. VALACICLOVIR [Suspect]
     Active Substance: VALACYCLOVIR HYDROCHLORIDE
     Indication: HERPES ZOSTER
     Dosage: 3000 MG PER 1 DAY
     Dates: start: 20190423
  3. METOPROLOL SANDOZ 50 MG DEPOTTABLETT [Concomitant]
     Dosage: 50MG PER 1 DAY
     Dates: start: 20170809
  4. LEVAXIN [Concomitant]
     Active Substance: LEVOTHYROXINE SODIUM

REACTIONS (1)
  - Delirium [Recovering/Resolving]

NARRATIVE: CASE EVENT DATE: 201904
